FAERS Safety Report 19087507 (Version 3)
Quarter: 2022Q2

REPORT INFORMATION
  Report Type: Spontaneous
  Country: US (occurrence: US)
  Receive Date: 20210402
  Receipt Date: 20220511
  Transmission Date: 20220721
  Serious: Yes (Life-Threatening, Hospitalization, Other)
  Sender: FDA-Public Use
  Company Number: US-MLMSERVICE-20210323-2790084-1

PATIENT
  Age: 68 Year
  Sex: Male

DRUGS (3)
  1. AMIODARONE HYDROCHLORIDE [Suspect]
     Active Substance: AMIODARONE HYDROCHLORIDE
     Indication: Atrial fibrillation
     Dosage: UNK
  2. OXYGEN [Concomitant]
     Active Substance: OXYGEN
     Dosage: UNK
  3. IPRATROPIUM BROMIDE AND ALBUTEROL SULFATE [Concomitant]
     Active Substance: ALBUTEROL SULFATE\IPRATROPIUM BROMIDE
     Dosage: UNK

REACTIONS (8)
  - Atrioventricular block first degree [Recovering/Resolving]
  - Bradycardia [Recovered/Resolved]
  - Ventricular hypokinesia [Recovering/Resolving]
  - Cardiac arrest [Recovered/Resolved]
  - Ventricular dysfunction [Recovering/Resolving]
  - Hypothyroidism [Recovering/Resolving]
  - Myocardial infarction [Recovering/Resolving]
  - Electrocardiogram T wave abnormal [Recovering/Resolving]
